FAERS Safety Report 12962037 (Version 2)
Quarter: 2017Q1

REPORT INFORMATION
  Report Type: Spontaneous
  Country: JP (occurrence: JP)
  Receive Date: 20161121
  Receipt Date: 20170112
  Transmission Date: 20170428
  Serious: Yes (Death, Hospitalization, Other)
  Sender: FDA-Public Use
  Company Number: JP-PFIZER INC-2016540454

PATIENT
  Age: 77 Year
  Sex: Female

DRUGS (1)
  1. RHEUMATREX [Suspect]
     Active Substance: METHOTREXATE SODIUM
     Indication: RHEUMATOID ARTHRITIS
     Dosage: 2 MG, 2X/WEEK
     Route: 048
     Dates: start: 2003, end: 200607

REACTIONS (3)
  - Lymphoma [Fatal]
  - Pneumocystis jirovecii pneumonia [Fatal]
  - Bone marrow failure [Unknown]

NARRATIVE: CASE EVENT DATE: 200605
